FAERS Safety Report 5329516-0 (Version None)
Quarter: 2007Q1

REPORT INFORMATION
  Report Type: 
  Country: None (occurrence: None)
  Receive Date: 20070223
  Receipt Date: 20060301
  Transmission Date: 20070707
  Serious: Yes (Life-Threatening, Hospitalization, Other)
  Sender: FDA-Public Use
  Company Number: WAES 0603USA00315

PATIENT
  Age: 43 Year
  Sex: Female

DRUGS (5)
  1. ZOCOR [Suspect]
     Indication: HYPERLIPIDAEMIA
     Dosage: 80 MG/DAILY/PO
     Route: 048
     Dates: start: 20010101, end: 20060221
  2. ATIVAN [Concomitant]
  3. PROZAC [Concomitant]
  4. QVAR 40 [Concomitant]
  5. TENORMIN [Concomitant]

REACTIONS (1)
  - RHABDOMYOLYSIS [None]
